FAERS Safety Report 8957186 (Version 3)
Quarter: 2013Q2

REPORT INFORMATION
  Report Type: Spontaneous
  Country: US (occurrence: US)
  Receive Date: 20121210
  Receipt Date: 20130408
  Transmission Date: 20140414
  Serious: Yes (Death, Hospitalization, Other)
  Sender: FDA-Public Use
  Company Number: US-ASTELLAS-2012US011487

PATIENT
  Age: 62 Year
  Sex: Male
  Weight: 168 kg

DRUGS (14)
  1. XTANDI [Suspect]
     Indication: NEOPLASM PROSTATE
     Dosage: 160 MG, UID/QD
     Route: 048
     Dates: start: 2012, end: 20121101
  2. CABAZITAXEL [Concomitant]
     Indication: PROSTATE CANCER
     Dosage: UNK
     Route: 065
  3. SIMETHICONE [Concomitant]
     Indication: PRODUCT USED FOR UNKNOWN INDICATION
     Dosage: 160 MG, PRN
     Route: 048
  4. LUPRON DEPOT [Concomitant]
     Indication: PRODUCT USED FOR UNKNOWN INDICATION
     Dosage: 30 MG, EVERY 4 MONTHS
     Route: 030
  5. ZOLOFT [Concomitant]
     Indication: PRODUCT USED FOR UNKNOWN INDICATION
     Dosage: 50 MG, UID/QD
     Route: 048
  6. APEX FLUCONAZOLE [Concomitant]
     Indication: PRODUCT USED FOR UNKNOWN INDICATION
     Dosage: 400 MG, UID/QD
     Route: 048
  7. ZOLPIDEM TARTRATE [Concomitant]
     Indication: PRODUCT USED FOR UNKNOWN INDICATION
     Dosage: 10 MG, QHS
     Route: 048
  8. ONDANSETRON HYDROCHLORIDE [Concomitant]
     Indication: NAUSEA
     Dosage: 4 MG, PRN
     Route: 048
  9. HYDROMORPHONE HYDROCHLORIDE [Concomitant]
     Indication: PRODUCT USED FOR UNKNOWN INDICATION
     Dosage: 2 MG, PRN
     Route: 048
  10. XANAX [Concomitant]
     Indication: PRODUCT USED FOR UNKNOWN INDICATION
     Dosage: 0.25 MG, TID
     Route: 048
  11. PROCHLORPERAZINE MALEATE [Concomitant]
     Indication: NAUSEA
     Dosage: 10 MG, PRN
     Route: 048
  12. MEGACE [Concomitant]
     Indication: PRODUCT USED FOR UNKNOWN INDICATION
     Dosage: 400 MG, UID/QD
     Route: 065
  13. LACTOBACILLUS [Concomitant]
     Indication: PRODUCT USED FOR UNKNOWN INDICATION
     Dosage: 1 DF, UID/QD
     Route: 065
  14. TYLENOL /00020001/ [Concomitant]
     Indication: PRODUCT USED FOR UNKNOWN INDICATION
     Dosage: 650 MG, PRN
     Route: 065

REACTIONS (15)
  - Death [Fatal]
  - Failure to thrive [Unknown]
  - Weight decreased [Unknown]
  - Bladder obstruction [Unknown]
  - Dehydration [Unknown]
  - Pleural effusion [Unknown]
  - Nausea [Unknown]
  - Sepsis [Unknown]
  - Urinary tract infection bacterial [Unknown]
  - Malignant neoplasm progression [Unknown]
  - Fatigue [Unknown]
  - Blood creatinine increased [Unknown]
  - Anaemia [Unknown]
  - Urinary tract infection fungal [Unknown]
  - Asthenia [Unknown]
